FAERS Safety Report 4721297-4 (Version None)
Quarter: 2005Q3

REPORT INFORMATION
  Report Type: 
  Country: None (occurrence: None)
  Receive Date: 20050721
  Receipt Date: 20040603
  Transmission Date: 20060218
  Serious: No
  Sender: FDA-Public Use
  Company Number: US-BRISTOL-MYERS SQUIBB COMPANY-12604252

PATIENT
  Age: 91 Year
  Sex: Male
  Weight: 88 kg

DRUGS (5)
  1. COUMADIN [Suspect]
     Indication: AORTIC VALVE REPLACEMENT
     Dosage: 4MG QOD ALTER.W/5MG QOD. INCR TO 2TABS OF 4MG 6/3+5MG 6/4.DOSE BACK TO 4MG QOD W/5MG QOD ON 6/5
     Route: 048
  2. LASIX [Concomitant]
  3. NORVASC [Concomitant]
  4. HYTRIN [Concomitant]
  5. POTASSIUM CHLORIDE [Concomitant]

REACTIONS (1)
  - INTERNATIONAL NORMALISED RATIO FLUCTUATION [None]
